FAERS Safety Report 18112075 (Version 2)
Quarter: 2020Q3

REPORT INFORMATION
  Report Type: Spontaneous
  Country: FR (occurrence: FR)
  Receive Date: 20200805
  Receipt Date: 20200811
  Transmission Date: 20201103
  Serious: Yes (Life-Threatening, Other)
  Sender: FDA-Public Use
  Company Number: FR-TEVA-2020-FR-1242296

PATIENT
  Age: 54 Year
  Sex: Male

DRUGS (4)
  1. ELIQUIS [Concomitant]
     Active Substance: APIXABAN
     Indication: ATRIAL FIBRILLATION
     Dosage: ONE DOSAGE FORM TWICE A DAY
     Route: 048
  2. COPAXONE [Suspect]
     Active Substance: GLATIRAMER ACETATE
     Indication: RELAPSING-REMITTING MULTIPLE SCLEROSIS
     Route: 058
     Dates: start: 2007, end: 202005
  3. COAPROVEL 300/25 [Concomitant]
     Indication: HYPERTENSION
     Route: 048
  4. FLECAINE LP 200 [Concomitant]
     Indication: ATRIAL FIBRILLATION
     Dosage: ONE DOSAGE FORM
     Route: 048

REACTIONS (10)
  - Wrong technique in product usage process [Unknown]
  - Therapy change [Unknown]
  - Therapy cessation [Unknown]
  - Anaplastic large-cell lymphoma [Unknown]
  - Groin pain [Unknown]
  - Gait disturbance [Unknown]
  - Discomfort [Not Recovered/Not Resolved]
  - Oedema peripheral [Unknown]
  - Swelling [Not Recovered/Not Resolved]
  - Lymphadenopathy [Not Recovered/Not Resolved]

NARRATIVE: CASE EVENT DATE: 20190401
